FAERS Safety Report 10718496 (Version 2)
Quarter: 2015Q1

REPORT INFORMATION
  Report Type: Spontaneous
  Country: US (occurrence: US)
  Receive Date: 20150119
  Receipt Date: 20150119
  Transmission Date: 20150721
  Serious: No
  Sender: FDA-Public Use
  Company Number: US-UNITED THERAPEUTICS-UNT-2014-000467

PATIENT
  Sex: Female

DRUGS (1)
  1. REMODULIN [Suspect]
     Active Substance: TREPROSTINIL
     Indication: PULMONARY ARTERIAL HYPERTENSION
     Dosage: 0.05729 ?G/KG/MIN, CONTINUING
     Route: 058
     Dates: start: 20130315

REACTIONS (5)
  - Infusion site abscess [Unknown]
  - Infusion site pustule [Unknown]
  - Infusion site infection [Unknown]
  - Drug hypersensitivity [Unknown]
  - Infusion site haemorrhage [Unknown]
